FAERS Safety Report 11867989 (Version 3)
Quarter: 2016Q2

REPORT INFORMATION
  Report Type: Report from Study
  Country: KR (occurrence: KR)
  Receive Date: 20151224
  Receipt Date: 20160505
  Transmission Date: 20160815
  Serious: Yes (Hospitalization, Other)
  Sender: FDA-Public Use
  Company Number: KR-REGENERON PHARMACEUTICALS, INC.-2015-15032

PATIENT

DRUGS (3)
  1. EYLEA [Suspect]
     Active Substance: AFLIBERCEPT
     Indication: NEOVASCULAR AGE-RELATED MACULAR DEGENERATION
     Dosage: 2 MG MILLIGRAM(S), (FIRST INJECTION, LEFT EYE)
     Route: 031
     Dates: start: 20150116
  2. EYLEA [Suspect]
     Active Substance: AFLIBERCEPT
     Dosage: 2 MG MILLIGRAM(S), UNSPECIFIED EYE
     Route: 031
     Dates: start: 20151021
  3. EYLEA [Suspect]
     Active Substance: AFLIBERCEPT
     Dosage: 2 MG MILLIGRAM(S) (LEFT EYE)
     Route: 031
     Dates: start: 20150325

REACTIONS (8)
  - Diarrhoea [Unknown]
  - Loss of consciousness [Unknown]
  - Depressed mood [Unknown]
  - Injection site pain [Unknown]
  - Hypoacusis [Unknown]
  - Ocular discomfort [Unknown]
  - Hospitalisation [Unknown]
  - Foreign body sensation in eyes [Not Recovered/Not Resolved]

NARRATIVE: CASE EVENT DATE: 201512
